FAERS Safety Report 4293738-0 (Version None)
Quarter: 2004Q1

REPORT INFORMATION
  Report Type: 
  Country: None (occurrence: None)
  Receive Date: 20040211
  Receipt Date: 20040211
  Transmission Date: 20041129
  Serious: Yes (Other)
  Sender: FDA-Public Use
  Company Number: None

PATIENT
  Sex: Female
  Weight: 102 kg

DRUGS (7)
  1. POLYGAM S/D [Suspect]
     Indication: CHRONIC INFLAMMATORY DEMYELINATING POLYRADICULONEUROPATHY
     Dosage: 40 GM EVERY 3 WE INTRAVENOUS
     Route: 042
     Dates: start: 20040204, end: 20040204
  2. ATENOLOL [Concomitant]
  3. DYAZIDE [Concomitant]
  4. SYNTHROID [Concomitant]
  5. PREMARIN [Concomitant]
  6. ZOCOR [Concomitant]
  7. GLUCOPHAGE [Concomitant]

REACTIONS (5)
  - ANXIETY [None]
  - DIARRHOEA [None]
  - MOVEMENT DISORDER [None]
  - NAUSEA [None]
  - TREMOR [None]
